FAERS Safety Report 9741986 (Version 2)
Quarter: 2014Q3

REPORT INFORMATION
  Report Type: Spontaneous
  Country: US (occurrence: US)
  Receive Date: 20131210
  Receipt Date: 20140714
  Transmission Date: 20150326
  Serious: Yes (Death)
  Sender: FDA-Public Use
  Company Number: US-PFIZER INC-2013349438

PATIENT
  Age: 34 Year
  Sex: Female

DRUGS (1)
  1. SUTENT [Suspect]
     Active Substance: SUNITINIB MALATE
     Indication: PHAEOCHROMOCYTOMA
     Dosage: 37.5 MG, CYCLIC, 4 WEEKS ON AND 2 WEEKS OFF
     Route: 048

REACTIONS (3)
  - Disease progression [Fatal]
  - Phaeochromocytoma [Fatal]
  - Off label use [Unknown]
